FAERS Safety Report 16395527 (Version 2)
Quarter: 2019Q3

REPORT INFORMATION
  Report Type: Report from Study
  Country: FR (occurrence: FR)
  Receive Date: 20190605
  Receipt Date: 20190701
  Transmission Date: 20191004
  Serious: Yes (Hospitalization)
  Sender: FDA-Public Use
  Company Number: FR-EXELIXIS-XL18419021632

PATIENT
  Age: 56 Year
  Sex: Male
  Weight: 64 kg

DRUGS (6)
  1. PANTOPRAZOLE [Concomitant]
     Active Substance: PANTOPRAZOLE
     Indication: GASTRIC PH DECREASED
     Dosage: 20 MG
     Route: 048
     Dates: start: 2017
  2. CABOZANTINIB [Suspect]
     Active Substance: CABOZANTINIB
     Indication: RENAL CELL CARCINOMA
     Dosage: 20 MG, QD
     Route: 048
     Dates: start: 20170827, end: 20170906
  3. ESOMEPRAZOLE. [Concomitant]
     Active Substance: ESOMEPRAZOLE MAGNESIUM
     Indication: GASTRIC PH DECREASED
     Dosage: 20 MG, QD
     Route: 048
     Dates: start: 201708
  4. FORLAX [Concomitant]
     Active Substance: POLYETHYLENE GLYCOL 4000
     Indication: DIARRHOEA
     Dosage: AS NEEDED
     Dates: start: 201708
  5. SOLUPRED [Concomitant]
     Indication: PAIN
  6. CABOZANTINIB [Suspect]
     Active Substance: CABOZANTINIB
     Dosage: 20 MG, QD
     Route: 048
     Dates: start: 20170921, end: 20171113

REACTIONS (3)
  - General physical health deterioration [Recovered/Resolved]
  - Stomatitis [Recovered/Resolved]
  - Diarrhoea [Recovered/Resolved]

NARRATIVE: CASE EVENT DATE: 20170907
